FAERS Safety Report 12037555 (Version 3)
Quarter: 2019Q3

REPORT INFORMATION
  Report Type: Report from Study
  Country: CO (occurrence: CO)
  Receive Date: 20160208
  Receipt Date: 20190923
  Transmission Date: 20191004
  Serious: Yes (Life-Threatening, Hospitalization)
  Sender: FDA-Public Use
  Company Number: PHHY2016CO015670

PATIENT
  Age: 38 Year
  Sex: Female
  Weight: 55 kg

DRUGS (2)
  1. REVOLADE [Suspect]
     Active Substance: ELTROMBOPAG
     Indication: IMMUNE THROMBOCYTOPENIC PURPURA
     Dosage: 50 MG, QD
     Route: 048
     Dates: start: 20140901
  2. REVOLADE [Suspect]
     Active Substance: ELTROMBOPAG
     Dosage: 75 MG, QD
     Route: 048
     Dates: start: 20141216

REACTIONS (10)
  - Headache [Unknown]
  - Contusion [Unknown]
  - Gingival bleeding [Unknown]
  - Petechiae [Unknown]
  - Epistaxis [Unknown]
  - Platelet count decreased [Unknown]
  - Amnesia [Unknown]
  - Nausea [Unknown]
  - Skin discolouration [Unknown]
  - Fatigue [Unknown]

NARRATIVE: CASE EVENT DATE: 20151224
